FAERS Safety Report 4344862-5 (Version None)
Quarter: 2004Q2

REPORT INFORMATION
  Report Type: 
  Country: None (occurrence: None)
  Receive Date: 20040423
  Receipt Date: 20030825
  Transmission Date: 20050107
  Serious: No
  Sender: FDA-Public Use
  Company Number: US-GLAXOSMITHKLINE-A0423372A

PATIENT
  Age: 11 Year
  Sex: Male

DRUGS (1)
  1. ZOFRAN [Suspect]
     Indication: ILL-DEFINED DISORDER

REACTIONS (1)
  - DRUG INEFFECTIVE [None]
